FAERS Safety Report 4349696-3 (Version None)
Quarter: 2004Q2

REPORT INFORMATION
  Report Type: 
  Country: None (occurrence: None)
  Receive Date: 20040426
  Receipt Date: 20040213
  Transmission Date: 20050107
  Serious: Yes (Hospitalization, Other)
  Sender: FDA-Public Use
  Company Number: 2004010131

PATIENT
  Age: 76 Year
  Sex: Male

DRUGS (11)
  1. ZITHROMAX [Suspect]
     Indication: UPPER RESPIRATORY TRACT INFECTION
     Dosage: (DAILY), ORAL
     Route: 048
     Dates: start: 20040201, end: 20040201
  2. FUROSEMIDE [Concomitant]
  3. POTASSIUM (POTASSIUM) [Concomitant]
  4. PREDNISONE [Concomitant]
  5. FAMOTIDINE [Concomitant]
  6. SPIRONOLACTONE [Concomitant]
  7. HYDROCHLOROTHIAZIDE [Concomitant]
  8. WARFARIN SODIUM [Concomitant]
  9. CLOPIDOGREL BISULFATE [Concomitant]
  10. ATORVASTATIN (ATORVASTATIN) [Concomitant]
  11. LEVOTHYROXINE SODIUM [Concomitant]

REACTIONS (1)
  - VENTRICULAR TACHYCARDIA [None]
